FAERS Safety Report 10279528 (Version 2)
Quarter: 2014Q3

REPORT INFORMATION
  Report Type: Spontaneous
  Country: US (occurrence: US)
  Receive Date: 20140707
  Receipt Date: 20140819
  Transmission Date: 20150326
  Serious: Yes (Hospitalization, Other)
  Sender: FDA-Public Use
  Company Number: US-AMGEN-USASP2014049742

PATIENT
  Age: 75 Year
  Sex: Male

DRUGS (1)
  1. ENBREL [Suspect]
     Active Substance: ETANERCEPT
     Indication: RHEUMATOID ARTHRITIS
     Dosage: 50 MG, QWK
     Route: 065

REACTIONS (16)
  - Knee arthroplasty [Recovered/Resolved]
  - Joint arthroplasty [Recovered/Resolved]
  - Colostomy [Recovered/Resolved]
  - Injection site pain [Not Recovered/Not Resolved]
  - Fall [Recovered/Resolved]
  - Diverticulitis [Recovered/Resolved]
  - Mobility decreased [Recovered/Resolved]
  - Large intestine perforation [Recovered/Resolved]
  - Pain [Not Recovered/Not Resolved]
  - Foot deformity [Recovered/Resolved]
  - Staphylococcal infection [Recovered/Resolved]
  - Abdominal hernia [Recovered/Resolved]
  - Hip arthroplasty [Recovered/Resolved]
  - Abasia [Not Recovered/Not Resolved]
  - Femur fracture [Recovered/Resolved]
  - Ostectomy [Recovered/Resolved]

NARRATIVE: CASE EVENT DATE: 20140328
